FAERS Safety Report 12568745 (Version 1)
Quarter: 2016Q3

REPORT INFORMATION
  Report Type: Spontaneous
  Country: None (occurrence: None)
  Receive Date: 20160718
  Receipt Date: 20160718
  Transmission Date: 20161109
  Serious: No
  Sender: FDA-Public Use
  Company Number: None

PATIENT
  Age: 66 Year

DRUGS (1)
  1. OMEPRAZOLE, 40 CAMBER PHA [Suspect]
     Active Substance: OMEPRAZOLE
     Indication: DYSPEPSIA
     Route: 048
     Dates: start: 20160218, end: 20160512

REACTIONS (2)
  - Gastrooesophageal reflux disease [None]
  - Product quality issue [None]

NARRATIVE: CASE EVENT DATE: 20160228
